FAERS Safety Report 7602592-8 (Version None)
Quarter: 2011Q3

REPORT INFORMATION
  Report Type: 
  Country: None (occurrence: None)
  Receive Date: 20110711
  Receipt Date: 20110711
  Transmission Date: 20111222
  Serious: Yes (Hospitalization)
  Sender: FDA-Public Use
  Company Number: None

PATIENT
  Sex: Male
  Weight: 83.6 kg

DRUGS (1)
  1. PRADAXA [Suspect]
     Indication: ATRIAL FIBRILLATION
     Dosage: 150MG BID BY MOUTH
     Route: 048
     Dates: start: 20101201, end: 20110201

REACTIONS (3)
  - POST PROCEDURAL HAEMORRHAGE [None]
  - GINGIVAL BLEEDING [None]
  - MOUTH HAEMORRHAGE [None]
